FAERS Safety Report 5777883-6 (Version None)
Quarter: 2008Q2

REPORT INFORMATION
  Report Type: 
  Country: None (occurrence: None)
  Receive Date: 20080618
  Receipt Date: 20080609
  Transmission Date: 20081010
  Serious: Yes (Other)
  Sender: FDA-Public Use
  Company Number: US-AMGEN-QUU283387

PATIENT
  Sex: Female
  Weight: 77.2 kg

DRUGS (8)
  1. ENBREL [Suspect]
     Indication: RHEUMATOID ARTHRITIS
     Route: 058
     Dates: start: 20030101, end: 20080101
  2. FLEXERIL [Concomitant]
  3. PREDNISONE TAB [Concomitant]
  4. ULTRACET [Concomitant]
  5. CELEBREX [Concomitant]
  6. NEURONTIN [Concomitant]
  7. CYMBALTA [Concomitant]
  8. ACTOS [Concomitant]

REACTIONS (4)
  - ANAEMIA [None]
  - CEREBRAL ISCHAEMIA [None]
  - CEREBROVASCULAR INSUFFICIENCY [None]
  - FACIAL SPASM [None]
